FAERS Safety Report 22051543 (Version 3)
Quarter: 2023Q2

REPORT INFORMATION
  Report Type: Spontaneous
  Country: JP (occurrence: JP)
  Receive Date: 20230301
  Receipt Date: 20230413
  Transmission Date: 20230721
  Serious: Yes (Other)
  Sender: FDA-Public Use
  Company Number: JP-002147023-NVSJ2023JP003788

PATIENT
  Age: 59 Year
  Sex: Female

DRUGS (2)
  1. PAZOPANIB [Suspect]
     Active Substance: PAZOPANIB
     Indication: Phyllodes tumour
     Dosage: 800 MG, QD
     Route: 048
  2. PAZOPANIB [Suspect]
     Active Substance: PAZOPANIB
     Dosage: 600 MG, QD (FROM DAY 50 OF THE TREATMENT)
     Route: 048

REACTIONS (7)
  - Thrombocytopenia [Unknown]
  - Pneumothorax [Recovering/Resolving]
  - Phyllodes tumour [Unknown]
  - Malignant neoplasm progression [Unknown]
  - Metastases to central nervous system [Unknown]
  - Nausea [Unknown]
  - Product use in unapproved indication [Unknown]
